FAERS Safety Report 9614732 (Version 1)
Quarter: 2013Q4

REPORT INFORMATION
  Report Type: Spontaneous
  Country: JP (occurrence: JP)
  Receive Date: 20131011
  Receipt Date: 20131011
  Transmission Date: 20140711
  Serious: Yes (Other)
  Sender: FDA-Public Use
  Company Number: JP-ASTELLAS-2013JP010596

PATIENT
  Age: 52 Year
  Sex: Male

DRUGS (5)
  1. TACROLIMUS [Suspect]
     Indication: PROPHYLAXIS AGAINST GRAFT VERSUS HOST DISEASE
     Route: 065
  2. FLUDARABINE [Concomitant]
     Indication: PREMEDICATION
     Dosage: 125 MG/M2, UNKNOWN/D
     Route: 065
  3. MELPHALAN [Concomitant]
     Indication: PREMEDICATION
     Dosage: 140 MG/M2, UNKNOWN/D
     Route: 065
  4. ATG                                /00575401/ [Concomitant]
     Indication: PREMEDICATION
     Dosage: 3 MG/KG, UNKNOWN/D
     Route: 065
  5. METHYLPREDNISOLONE [Concomitant]
     Indication: PROPHYLAXIS AGAINST GRAFT VERSUS HOST DISEASE
     Route: 065

REACTIONS (2)
  - Drug ineffective [Unknown]
  - Graft versus host disease [Recovered/Resolved]
